FAERS Safety Report 8437504-0 (Version None)
Quarter: 2012Q2

REPORT INFORMATION
  Report Type: 
  Country: None (occurrence: None)
  Receive Date: 20120323
  Receipt Date: 20110614
  Transmission Date: 20120825
  Serious: Yes (Other)
  Sender: FDA-Public Use
  Company Number: 163-21880-11062412

PATIENT
  Age: 63 Year
  Sex: Male

DRUGS (9)
  1. REVLIMID [Suspect]
     Indication: MULTIPLE MYELOMA
     Dosage: 25 MG, DAILY X 21 DAYS, PO
     Route: 048
     Dates: start: 20100501
  2. BACTRIM [Concomitant]
  3. DECADRON [Concomitant]
  4. LORAZEPAM [Concomitant]
  5. SUPER B COMPLEX (VITAMIN-B-KOMPLEX STANDARD) [Concomitant]
  6. OMEPRAZOLE [Concomitant]
  7. LOVENOX [Concomitant]
  8. VITAMIN E [Concomitant]
  9. ACYCLOVIR [Concomitant]

REACTIONS (1)
  - THROMBOSIS [None]
